FAERS Safety Report 5278163-8 (Version None)
Quarter: 2007Q1

REPORT INFORMATION
  Report Type: 
  Country: None (occurrence: None)
  Receive Date: 20061213
  Receipt Date: 20060228
  Transmission Date: 20070707
  Serious: No
  Sender: FDA-Public Use
  Company Number: 2006UW03450

PATIENT
  Age: 45 Year
  Sex: Female
  Weight: 58.967 kg

DRUGS (5)
  1. SEROQUEL [Suspect]
     Indication: BIPOLAR DISORDER
     Dosage: 600 MG QD PO
     Route: 048
     Dates: start: 20051101, end: 20060101
  2. LAMICTAL [Concomitant]
  3. WELLBUTRIN [Concomitant]
  4. TRAZODONE HCL [Concomitant]
  5. CLONAZEPAM [Concomitant]

REACTIONS (4)
  - MIGRAINE [None]
  - NECK PAIN [None]
  - VISUAL DISTURBANCE [None]
  - WEIGHT INCREASED [None]
